FAERS Safety Report 4616603-5 (Version None)
Quarter: 2005Q1

REPORT INFORMATION
  Report Type: 
  Country: None (occurrence: None)
  Receive Date: 20050318
  Receipt Date: 20050307
  Transmission Date: 20050727
  Serious: Yes (Other)
  Sender: FDA-Public Use
  Company Number: 2005042258

PATIENT
  Age: 45 Year
  Sex: Female
  Weight: 56.6996 kg

DRUGS (9)
  1. NEURONTIN [Suspect]
     Indication: EPILEPSY
     Dosage: ORAL
     Route: 048
  2. PHENYTOIN SODIUM [Concomitant]
  3. LAMOTRIGINE [Concomitant]
  4. LORAZEPAM [Concomitant]
  5. FEXOFENADINE HYDROCHLORIDE [Concomitant]
  6. IPRATROPIUM BROMIDE (IIPRATROPIUM BROMIDE) [Concomitant]
  7. FLUTICASONE PROPIONATE [Concomitant]
  8. PIRBUTEROL ACETATE (PIRBUTEROL ACETATE) [Concomitant]
  9. EPINEPHRINE [Concomitant]

REACTIONS (2)
  - COMPLEX PARTIAL SEIZURES [None]
  - PHARMACEUTICAL PRODUCT COMPLAINT [None]
